FAERS Safety Report 19680528 (Version 1)
Quarter: 2021Q3

REPORT INFORMATION
  Report Type: Spontaneous
  Country: US (occurrence: US)
  Receive Date: 20210810
  Receipt Date: 20210810
  Transmission Date: 20211014
  Serious: Yes (Other)
  Sender: FDA-Public Use
  Company Number: US-SA-2021SA260389

PATIENT
  Age: 53 Year
  Sex: Female

DRUGS (1)
  1. ZANTAC [Suspect]
     Active Substance: RANITIDINE HYDROCHLORIDE
     Indication: DYSPEPSIA
     Dosage: 150 MG
     Dates: start: 199701, end: 201902

REACTIONS (4)
  - Brain neoplasm malignant [Unknown]
  - Spinal cord neoplasm [Unknown]
  - Breast cancer stage IV [Unknown]
  - Lymphoma [Unknown]

NARRATIVE: CASE EVENT DATE: 20180613
